FAERS Safety Report 6147164-X (Version None)
Quarter: 2009Q2

REPORT INFORMATION
  Report Type: 
  Country: None (occurrence: None)
  Receive Date: 20090406
  Receipt Date: 20090331
  Transmission Date: 20091009
  Serious: Yes (Hospitalization)
  Sender: FDA-Public Use
  Company Number: 2009002746

PATIENT
  Age: 67 Year
  Sex: Female
  Weight: 59.7 kg

DRUGS (7)
  1. TREANDA [Suspect]
     Indication: B-CELL LYMPHOMA
     Dosage: (137 MG), INTRAVENOUS
     Route: 042
     Dates: start: 20090205
  2. VELCADE [Suspect]
     Indication: B-CELL LYMPHOMA
     Dosage: (2.43 MG), INTRAVENOUS
     Route: 042
     Dates: start: 20090205
  3. RITUXAN [Suspect]
     Indication: B-CELL LYMPHOMA
     Dosage: (570 MG), INTRAVENOUS
     Route: 042
     Dates: start: 20090205
  4. VALTREX [Concomitant]
  5. NEURONTIN [Concomitant]
  6. LISINOPRIL [Concomitant]
  7. CIPRO (CYPROHEPTADINE HYDROCHLORIDE) [Concomitant]

REACTIONS (8)
  - ASTHENIA [None]
  - DIARRHOEA [None]
  - DYSSTASIA [None]
  - HEAD INJURY [None]
  - HYPOTENSION [None]
  - PERFORMANCE STATUS DECREASED [None]
  - SYNCOPE [None]
  - URINARY INCONTINENCE [None]
